FAERS Safety Report 6987281-5 (Version None)
Quarter: 2010Q3

REPORT INFORMATION
  Report Type: 
  Country: None (occurrence: None)
  Receive Date: 20100825
  Receipt Date: 20100602
  Transmission Date: 20110219
  Serious: No
  Sender: FDA-Public Use
  Company Number: 201006008

PATIENT
  Sex: Male
  Weight: 124.7392 kg

DRUGS (3)
  1. XIAFLEX [Suspect]
     Indication: DUPUYTREN'S CONTRACTURE
     Dosage: INTRALESIONAL
     Route: 026
     Dates: start: 20100601, end: 20100601
  2. NEXIUM [Concomitant]
  3. LIMBREL [Concomitant]

REACTIONS (4)
  - INJECTION SITE HAEMATOMA [None]
  - INJECTION SITE PAIN [None]
  - INJECTION SITE SWELLING [None]
  - OEDEMA PERIPHERAL [None]
